FAERS Safety Report 14962758 (Version 1)
Quarter: 2018Q2

REPORT INFORMATION
  Report Type: Report from Study
  Country: DE (occurrence: DE)
  Receive Date: 20180601
  Receipt Date: 20180601
  Transmission Date: 20180711
  Serious: Yes (Other)
  Sender: FDA-Public Use
  Company Number: DE-ACCORD-067540

PATIENT
  Age: 7 Month
  Weight: 7.5 kg

DRUGS (2)
  1. CARBOPLATIN. [Suspect]
     Active Substance: CARBOPLATIN
     Indication: METASTASES TO SPINE
     Dosage: 3 X 500 MG/M2
  2. THIOTEPA. [Suspect]
     Active Substance: THIOTEPA
     Indication: RHABDOID TUMOUR
     Dosage: 3 X 300MG/M2

REACTIONS (1)
  - Venoocclusive disease [Recovered/Resolved]
